FAERS Safety Report 20872269 (Version 1)
Quarter: 2022Q2

REPORT INFORMATION
  Report Type: Spontaneous
  Country: US (occurrence: None)
  Receive Date: 20220525
  Receipt Date: 20220525
  Transmission Date: 20220721
  Serious: No
  Sender: FDA-Public Use
  Company Number: None

PATIENT
  Age: 31 Year
  Sex: Male
  Weight: 90 kg

DRUGS (2)
  1. CIPROFLOXACIN [Suspect]
     Active Substance: CIPROFLOXACIN
     Indication: Infection prophylaxis
     Dates: start: 20200604, end: 20200605
  2. TYLENOL [Concomitant]
     Active Substance: ACETAMINOPHEN

REACTIONS (8)
  - Myalgia [None]
  - Feeling hot [None]
  - Neuropathy peripheral [None]
  - Palpitations [None]
  - Arthralgia [None]
  - Lethargy [None]
  - Pain [None]
  - Asthenia [None]

NARRATIVE: CASE EVENT DATE: 20200605
